FAERS Safety Report 8821174 (Version 1)
Quarter: 2012Q4

REPORT INFORMATION
  Report Type: 
  Country: US (occurrence: US)
  Receive Date: 20121002
  Receipt Date: 20121002
  Transmission Date: 20130627
  Serious: Yes (Other)
  Sender: FDA-Public Use
  Company Number: US-ROXANE LABORATORIES, INC.-2012-RO-01927RO

PATIENT
  Age: 28 Year
  Sex: Female

DRUGS (6)
  1. LITHIUM CARBONATE [Suspect]
     Indication: BIPOLAR I DISORDER
  2. MACROGOL [Suspect]
  3. ESCITALOPRAM [Suspect]
  4. SYNTHROID [Suspect]
  5. HEPARIN [Suspect]
     Indication: FACTOR V LEIDEN MUTATION
     Dosage: 200 mg
  6. MAGNESIUM [Suspect]

REACTIONS (4)
  - Stillbirth [Unknown]
  - Abortion spontaneous [Unknown]
  - Polyhydramnios [Unknown]
  - Maternal exposure during pregnancy [None]
